FAERS Safety Report 21675279 (Version 1)
Quarter: 2022Q4

REPORT INFORMATION
  Report Type: Spontaneous
  Country: US (occurrence: None)
  Receive Date: 20221202
  Receipt Date: 20221202
  Transmission Date: 20230112
  Serious: Yes (Other)
  Sender: FDA-Public Use
  Company Number: None

PATIENT
  Age: 52 Year
  Sex: Female
  Weight: 60.75 kg

DRUGS (11)
  1. SLEEP AID (DIPHENHYDRAMINE HYDROCHLORIDE) [Suspect]
     Active Substance: DIPHENHYDRAMINE HYDROCHLORIDE
     Indication: Insomnia
     Dosage: OTHER QUANTITY : 2 CAPSULE(S);?FREQUENCY : AT BEDTIME;?
     Route: 048
     Dates: start: 20220801, end: 20221028
  2. LISINOPRIL [Concomitant]
     Active Substance: LISINOPRIL
  3. XARELTO [Concomitant]
     Active Substance: RIVAROXABAN
  4. Asvorstatin [Concomitant]
  5. PLAVIX [Concomitant]
     Active Substance: CLOPIDOGREL BISULFATE
  6. COSENTYX [Concomitant]
     Active Substance: SECUKINUMAB
  7. Acetometophin [Concomitant]
  8. VITAMIN D [Concomitant]
     Active Substance: VITAMIN D NOS
  9. Vitmains B [Concomitant]
  10. VITAMIN C [Concomitant]
     Active Substance: ASCORBIC ACID
  11. ZINC [Concomitant]
     Active Substance: ZINC

REACTIONS (1)
  - Opiates positive [None]

NARRATIVE: CASE EVENT DATE: 20221006
